FAERS Safety Report 6984163-X (Version None)
Quarter: 2010Q3

REPORT INFORMATION
  Report Type: 
  Country: None (occurrence: None)
  Receive Date: 20100915
  Receipt Date: 20090713
  Transmission Date: 20110219
  Serious: No
  Sender: FDA-Public Use
  Company Number: US-WYE-H10144809

PATIENT

DRUGS (1)
  1. ADVIL LIQUI-GELS [Suspect]

REACTIONS (2)
  - ABDOMINAL DISCOMFORT [None]
  - THERAPEUTIC RESPONSE UNEXPECTED [None]
